FAERS Safety Report 6266671-2 (Version None)
Quarter: 2009Q3

REPORT INFORMATION
  Report Type: 
  Country: None (occurrence: None)
  Receive Date: 20090710
  Receipt Date: 20090624
  Transmission Date: 20100115
  Serious: Yes (Hospitalization)
  Sender: FDA-Public Use
  Company Number: B0519160A

PATIENT
  Age: 16 Year
  Sex: Male

DRUGS (6)
  1. LAMICTAL [Suspect]
     Indication: EPILEPSY
     Dosage: 25 MG / THREE TIMES PER DAY / ORAL
     Route: 048
     Dates: start: 20071201, end: 20071227
  2. VALPROATE SODIUM [Suspect]
     Indication: EPILEPSY
     Dosage: 450 MG / PER DAY /
     Dates: start: 20071201
  3. DICLOFENAC SODIUM [Concomitant]
  4. CORTICOSTEROID [Concomitant]
  5. ANTIHISTAMINE [Concomitant]
  6. PENICILLIN V BENZATHINE [Concomitant]

REACTIONS (7)
  - DYSPHAGIA [None]
  - MUCOSAL EXFOLIATION [None]
  - OROPHARYNGEAL PAIN [None]
  - PYREXIA [None]
  - RASH MACULO-PAPULAR [None]
  - STREPTOCOCCAL INFECTION [None]
  - UNEVALUABLE EVENT [None]
